FAERS Safety Report 6203594-9 (Version None)
Quarter: 2009Q2

REPORT INFORMATION
  Report Type: 
  Country: None (occurrence: None)
  Receive Date: 20090527
  Receipt Date: 20090520
  Transmission Date: 20091009
  Serious: Yes (Life-Threatening, Hospitalization, Other)
  Sender: FDA-Public Use
  Company Number: FR-BRISTOL-MYERS SQUIBB COMPANY-14637094

PATIENT
  Age: 54 Year
  Sex: Female

DRUGS (11)
  1. GLUCOPHAGE [Suspect]
     Indication: TYPE 2 DIABETES MELLITUS
     Dosage: COATED TABLET
     Route: 048
  2. LEVOTHYROX [Concomitant]
     Indication: HYPOTHYROIDISM
  3. COAPROVEL [Concomitant]
     Indication: HYPERTENSION
  4. AVANDIA [Concomitant]
  5. EUPRESSYL [Concomitant]
  6. RIVOTRIL [Concomitant]
  7. VASTAREL [Concomitant]
  8. AMLODIPINE BESYLATE [Concomitant]
  9. SKENAN [Concomitant]
  10. ATHYMIL [Concomitant]
  11. DIFFU-K [Concomitant]

REACTIONS (2)
  - LACTIC ACIDOSIS [None]
  - RENAL FAILURE [None]
